FAERS Safety Report 8384456-8 (Version None)
Quarter: 2012Q2

REPORT INFORMATION
  Report Type: 
  Country: None (occurrence: None)
  Receive Date: 20120524
  Receipt Date: 20120515
  Transmission Date: 20120825
  Serious: Yes (Disabling, Congenital Anomaly)
  Sender: FDA-Public Use
  Company Number: FR-GLAXOSMITHKLINE-B0801504A

PATIENT

DRUGS (2)
  1. STAMARIL [Suspect]
     Indication: PROPHYLAXIS
     Dosage: 1INJ SINGLE DOSE
     Route: 064
     Dates: start: 20111217, end: 20111217
  2. MALARONE [Suspect]
     Indication: MALARIA PROPHYLAXIS
     Dosage: 1TAB PER DAY
     Route: 064
     Dates: start: 20111217, end: 20120110

REACTIONS (2)
  - ARNOLD-CHIARI MALFORMATION [None]
  - FOETAL EXPOSURE DURING PREGNANCY [None]
